FAERS Safety Report 5087295-9 (Version None)
Quarter: 2006Q3

REPORT INFORMATION
  Report Type: 
  Country: None (occurrence: None)
  Receive Date: 20060824
  Receipt Date: 20060526
  Transmission Date: 20061208
  Serious: Yes (Death, Life-Threatening, Hospitalization, Other)
  Sender: FDA-Public Use
  Company Number: US-BAYER-200612266BCC

PATIENT
  Age: 87 Year
  Sex: Male
  Weight: 77 kg

DRUGS (7)
  1. ALEVE (CAPLET) [Suspect]
     Indication: ARTHRITIS
     Dosage: TOTAL DAILY DOSE: 440 MG  UNIT DOSE: 220 MG
     Route: 048
  2. ASPIRIN [Suspect]
  3. ARICEPT [Concomitant]
     Dosage: TOTAL DAILY DOSE: 5 MG  UNIT DOSE: 5 MG
     Route: 048
  4. TUMS [Concomitant]
     Indication: DYSPEPSIA
  5. TAGAMET [Concomitant]
  6. VITAMIN E [Concomitant]
  7. MULTI-VITAMIN [Concomitant]

REACTIONS (44)
  - ASTHENIA [None]
  - ATELECTASIS [None]
  - ATRIAL FIBRILLATION [None]
  - BLOOD ALKALINE PHOSPHATASE INCREASED [None]
  - BLOOD BILIRUBIN INCREASED [None]
  - BRADYCARDIA [None]
  - CHILLS [None]
  - CHOLECYSTITIS ACUTE [None]
  - CHOLELITHIASIS [None]
  - COUGH [None]
  - DUODENAL ULCER HAEMORRHAGE [None]
  - DYSPHAGIA [None]
  - DYSPNOEA [None]
  - ELECTROMECHANICAL DISSOCIATION [None]
  - EXTRASYSTOLES [None]
  - FALL [None]
  - FATIGUE [None]
  - GALLBLADDER DISORDER [None]
  - GALLBLADDER OBSTRUCTION [None]
  - GASTRITIS EROSIVE [None]
  - GASTROINTESTINAL MOTILITY DISORDER [None]
  - GASTROOESOPHAGEAL REFLUX DISEASE [None]
  - HAEMATEMESIS [None]
  - HAEMOPTYSIS [None]
  - HELICOBACTER PYLORI IDENTIFICATION TEST POSITIVE [None]
  - HIATUS HERNIA [None]
  - ILEUS [None]
  - INCISIONAL HERNIA [None]
  - INTESTINAL PROLAPSE [None]
  - LETHARGY [None]
  - LEUKOCYTOSIS [None]
  - LIVER ABSCESS [None]
  - MELAENA [None]
  - NAUSEA [None]
  - PEPTIC ULCER [None]
  - PERITONEAL EFFUSION [None]
  - PLEURAL EFFUSION [None]
  - PNEUMONITIS [None]
  - PYREXIA [None]
  - SHIFT TO THE LEFT [None]
  - UPPER GASTROINTESTINAL HAEMORRHAGE [None]
  - VOMITING [None]
  - WHITE BLOOD CELL COUNT INCREASED [None]
  - WOUND DEHISCENCE [None]
